FAERS Safety Report 5074397-6 (Version None)
Quarter: 2006Q3

REPORT INFORMATION
  Report Type: 
  Country: None (occurrence: None)
  Receive Date: 20060803
  Receipt Date: 20060724
  Transmission Date: 20061208
  Serious: Yes (Hospitalization)
  Sender: FDA-Public Use
  Company Number: HQWYE398826JUL06

PATIENT
  Age: 70 Year
  Sex: Female

DRUGS (1)
  1. MYLOTARG [Suspect]
     Indication: ACUTE MYELOID LEUKAEMIA RECURRENT
     Dosage: 9 MG/M^2 1X PER 1 DAY, INTRAVENOUS DRIP
     Route: 041
     Dates: start: 20060615, end: 20060615

REACTIONS (7)
  - ENTEROCOLITIS [None]
  - NEUTROPHIL COUNT DECREASED [None]
  - PLATELET COUNT DECREASED [None]
  - PNEUMONIA STAPHYLOCOCCAL [None]
  - SEPSIS [None]
  - SYSTEMIC CANDIDA [None]
  - WHITE BLOOD CELL COUNT DECREASED [None]
